FAERS Safety Report 23064413 (Version 1)
Quarter: 2023Q4

REPORT INFORMATION
  Report Type: Spontaneous
  Country: NL (occurrence: NL)
  Receive Date: 20231013
  Receipt Date: 20231013
  Transmission Date: 20240109
  Serious: Yes (Life-Threatening)
  Sender: FDA-Public Use
  Company Number: None

PATIENT
  Age: 53 Year
  Sex: Male
  Weight: 92 kg

DRUGS (2)
  1. SOTALOL [Suspect]
     Active Substance: SOTALOL
     Indication: Cardiac disorder
     Dosage: 160 MILLIGRAM, BID
     Route: 065
     Dates: start: 20220401
  2. XYLOMETAZOLINE [Suspect]
     Active Substance: XYLOMETAZOLINE
     Indication: Nasal congestion
     Dosage: 4 DOSAGE FORM, QD
     Route: 065
     Dates: start: 20080101

REACTIONS (1)
  - Cardiac arrest [Recovered/Resolved]
